FAERS Safety Report 10703535 (Version 4)
Quarter: 2015Q2

REPORT INFORMATION
  Report Type: Report from Study
  Country: CA (occurrence: CA)
  Receive Date: 20150112
  Receipt Date: 20150424
  Transmission Date: 20150821
  Serious: Yes (Other)
  Sender: FDA-Public Use
  Company Number: PHHY2014CA121102

PATIENT
  Age: 64 Year
  Sex: Female

DRUGS (2)
  1. SANDOSTATIN [Suspect]
     Active Substance: OCTREOTIDE ACETATE
     Indication: NEUROENDOCRINE TUMOUR
     Dosage: 200 UG, TID (FOR 10 DAYS)
     Route: 058
     Dates: start: 20140611, end: 20140620
  2. SANDOSTATIN LAR DEPOT [Suspect]
     Active Substance: OCTREOTIDE ACETATE
     Indication: NEUROENDOCRINE TUMOUR
     Dosage: 20 MG, QMO (ONCE A MONTH)
     Route: 030
     Dates: start: 20140618

REACTIONS (8)
  - Injection site pain [Recovered/Resolved]
  - Vomiting [Unknown]
  - Metastases to liver [Unknown]
  - Myalgia [Unknown]
  - Bone pain [Unknown]
  - Nausea [Unknown]
  - Mass [Unknown]
  - Blood pressure increased [Unknown]

NARRATIVE: CASE EVENT DATE: 2014
